FAERS Safety Report 13255388 (Version 1)
Quarter: 2017Q1

REPORT INFORMATION
  Report Type: Spontaneous
  Country: US (occurrence: US)
  Receive Date: 20170217
  Receipt Date: 20170217
  Transmission Date: 20170428
  Serious: Yes (Other)
  Sender: FDA-Public Use
  Company Number: None

PATIENT
  Age: 87 Year
  Sex: Female
  Weight: 58 kg

DRUGS (7)
  1. FENOFLBRATE [Concomitant]
  2. RAMIPRIL. [Concomitant]
     Active Substance: RAMIPRIL
  3. AMARYL [Concomitant]
     Active Substance: GLIMEPIRIDE
  4. BISOPROLOL FUMARNATE [Concomitant]
  5. RUXOLITINIB [Suspect]
     Active Substance: RUXOLITINIB
     Indication: DRUG THERAPY
     Route: 048
     Dates: start: 20160205, end: 20161209
  6. RUXOLITINIB [Suspect]
     Active Substance: RUXOLITINIB
     Indication: DRUG THERAPY
     Route: 048
     Dates: start: 20170203
  7. ALLOPURINOL. [Concomitant]
     Active Substance: ALLOPURINOL

REACTIONS (3)
  - Toxoplasmosis [None]
  - Retinal detachment [None]
  - Uveitis [None]

NARRATIVE: CASE EVENT DATE: 20161205
